FAERS Safety Report 19589154 (Version 3)
Quarter: 2021Q3

REPORT INFORMATION
  Report Type: Spontaneous
  Country: US (occurrence: US)
  Receive Date: 20210721
  Receipt Date: 20210819
  Transmission Date: 20211014
  Serious: Yes (Hospitalization, Other)
  Sender: FDA-Public Use
  Company Number: US-PFIZER INC-2021854920

PATIENT
  Age: 66 Year
  Sex: Female
  Weight: 131.52 kg

DRUGS (1)
  1. CHANTIX [Suspect]
     Active Substance: VARENICLINE TARTRATE
     Indication: SMOKING CESSATION THERAPY
     Dosage: 10MG (2 TIMES A DAY)
     Dates: start: 202103, end: 202106

REACTIONS (7)
  - Overdose [Unknown]
  - Crying [Not Recovered/Not Resolved]
  - Anxiety [Not Recovered/Not Resolved]
  - Drug dependence [Not Recovered/Not Resolved]
  - Aggression [Not Recovered/Not Resolved]
  - Eating disorder [Not Recovered/Not Resolved]
  - Depression [Not Recovered/Not Resolved]
